FAERS Safety Report 15050117 (Version 2)
Quarter: 2018Q2

REPORT INFORMATION
  Report Type: Spontaneous
  Country: US (occurrence: US)
  Receive Date: 20180622
  Receipt Date: 20180628
  Transmission Date: 20180711
  Serious: Yes (Hospitalization)
  Sender: FDA-Public Use
  Company Number: US-ASTRAZENECA-2018SE80814

PATIENT
  Age: 31989 Day
  Sex: Male
  Weight: 120.2 kg

DRUGS (10)
  1. BYETTA [Suspect]
     Active Substance: EXENATIDE
     Indication: TYPE 2 DIABETES MELLITUS
     Route: 058
  2. VITAMIN D [Concomitant]
     Active Substance: CHOLECALCIFEROL
  3. CALCIUM [Concomitant]
     Active Substance: CALCIUM
  4. ASPIRIN. [Concomitant]
     Active Substance: ASPIRIN
     Indication: ATRIAL FIBRILLATION
     Route: 048
  5. ATORVASTATIN [Concomitant]
     Active Substance: ATORVASTATIN
     Indication: CARDIAC DISORDER
     Route: 048
  6. ALLOPURINOL. [Concomitant]
     Active Substance: ALLOPURINOL
     Indication: NEUROPATHY PERIPHERAL
  7. MULTI-VITAMINS [Concomitant]
     Route: 048
  8. OXCARBAZEPINE. [Concomitant]
     Active Substance: OXCARBAZEPINE
     Indication: MEMORY IMPAIRMENT
     Route: 048
  9. AMOXICILLIN. [Concomitant]
     Active Substance: AMOXICILLIN
     Dosage: 4, ONE HOUR PRIOR TO DENTAL OR DERMATOLOGIST VISIT AS A PREVENTATIVE FOR INFECTION
  10. TAMSULOSIN HYDROCHLORIDE. [Concomitant]
     Active Substance: TAMSULOSIN HYDROCHLORIDE
     Indication: POLLAKIURIA
     Dosage: 0.4 MG, 2 CAPSULES 30 MINUTES AFTER SUPPER
     Route: 048

REACTIONS (17)
  - Device leakage [Unknown]
  - Product use issue [Unknown]
  - Transient ischaemic attack [Unknown]
  - Atrial fibrillation [Unknown]
  - Wrong technique in device usage process [Unknown]
  - Device malfunction [Unknown]
  - Concussion [Unknown]
  - Memory impairment [Not Recovered/Not Resolved]
  - Osteoarthritis [Unknown]
  - Incorrect dose administered by device [Unknown]
  - Cardiac disorder [Unknown]
  - Blood glucose fluctuation [Not Recovered/Not Resolved]
  - Arthritis [Unknown]
  - Gout [Unknown]
  - Syncope [Recovered/Resolved]
  - Hypoacusis [Not Recovered/Not Resolved]
  - Pollakiuria [Unknown]

NARRATIVE: CASE EVENT DATE: 20180611
